FAERS Safety Report 9355577 (Version 1)
Quarter: 2013Q2

REPORT INFORMATION
  Report Type: Spontaneous
  Country: US (occurrence: None)
  Receive Date: 20130618
  Receipt Date: 20130618
  Transmission Date: 20140414
  Serious: Yes (Hospitalization)
  Sender: FDA-Public Use
  Company Number: None

PATIENT
  Age: 83 Year
  Sex: Male
  Weight: 61.24 kg

DRUGS (6)
  1. DOXYCYCLINE HYCLATE [Suspect]
     Indication: FALL
     Dosage: 3 PILLS/DAY   3/DAY  MOUTH
     Route: 048
     Dates: start: 20130423, end: 20130426
  2. DOXYCYCLINE HYCLATE [Suspect]
     Indication: EXCORIATION
     Dosage: 3 PILLS/DAY   3/DAY  MOUTH
     Route: 048
     Dates: start: 20130423, end: 20130426
  3. DOXYCYCLINE HYCLATE [Suspect]
     Indication: WOUND
     Dosage: 3 PILLS/DAY   3/DAY  MOUTH
     Route: 048
     Dates: start: 20130423, end: 20130426
  4. LEVOTHYROXINE [Concomitant]
  5. SERTRALINE [Concomitant]
  6. VITAMIN [Concomitant]

REACTIONS (1)
  - No adverse event [None]
